FAERS Safety Report 11536810 (Version 1)
Quarter: 2015Q3

REPORT INFORMATION
  Report Type: Spontaneous
  Country: US (occurrence: US)
  Receive Date: 20150922
  Receipt Date: 20150922
  Transmission Date: 20151125
  Serious: No
  Sender: FDA-Public Use
  Company Number: US-BAYER-2015-422379

PATIENT
  Age: 64 Year
  Sex: Female
  Weight: 77.98 kg

DRUGS (7)
  1. MORPHINE SULFATE EXTENDED-RELEASE [Concomitant]
     Active Substance: MORPHINE SULFATE
     Indication: SPINAL COLUMN STENOSIS
  2. BIFIDOBACTERIUM LACTIS [Concomitant]
     Dosage: 4 MG ONE CAPSULE
     Route: 048
  3. PRILOSEC [Concomitant]
     Active Substance: OMEPRAZOLE MAGNESIUM
     Indication: DIVERTICULITIS
     Dosage: 20 MG ONCE
     Route: 048
  4. CLIMARA [Suspect]
     Active Substance: ESTRADIOL
     Indication: HYSTERECTOMY
     Dosage: DAILY DOSE .037 MG
     Route: 062
     Dates: start: 20150729
  5. CYMBALTA [Concomitant]
     Active Substance: DULOXETINE HYDROCHLORIDE
     Indication: FIBROMYALGIA
     Dosage: 30 MG ONCE
     Route: 048
  6. MORPHINE SULFATE EXTENDED-RELEASE [Concomitant]
     Active Substance: MORPHINE SULFATE
     Indication: FIBROMYALGIA
     Dosage: UNK
     Route: 048
  7. LAMICTAL [Concomitant]
     Active Substance: LAMOTRIGINE
     Indication: FIBROMYALGIA
     Dosage: 200 MG ONCE
     Route: 048

REACTIONS (3)
  - Drug ineffective [None]
  - Product adhesion issue [None]
  - Product packaging issue [None]

NARRATIVE: CASE EVENT DATE: 20150731
